FAERS Safety Report 16146339 (Version 2)
Quarter: 2019Q2

REPORT INFORMATION
  Report Type: Spontaneous
  Country: US (occurrence: US)
  Receive Date: 20190402
  Receipt Date: 20190513
  Transmission Date: 20190711
  Serious: No
  Sender: FDA-Public Use
  Company Number: US-PFIZER INC-2019135720

PATIENT
  Age: 69 Year
  Sex: Male
  Weight: 79.38 kg

DRUGS (2)
  1. LYRICA [Suspect]
     Active Substance: PREGABALIN
     Indication: NEUROPATHY PERIPHERAL
     Dosage: 50 MG, TWICE DAILY
     Route: 048
  2. LYRICA [Suspect]
     Active Substance: PREGABALIN
     Indication: ARTHRITIS

REACTIONS (6)
  - Pain [Unknown]
  - Paraesthesia [Unknown]
  - Amnesia [Unknown]
  - Hypoaesthesia [Unknown]
  - Off label use [Unknown]
  - Product use in unapproved indication [Unknown]
